FAERS Safety Report 13387687 (Version 2)
Quarter: 2017Q2

REPORT INFORMATION
  Report Type: Spontaneous
  Country: US (occurrence: US)
  Receive Date: 20170330
  Receipt Date: 20170612
  Transmission Date: 20170830
  Serious: No
  Sender: FDA-Public Use
  Company Number: US-ASTRAZENECA-2017SE31619

PATIENT
  Sex: Male

DRUGS (4)
  1. BEVESPI AEROSPHERE [Suspect]
     Active Substance: FORMOTEROL FUMARATE\GLYCOPYRROLATE
     Indication: CHRONIC OBSTRUCTIVE PULMONARY DISEASE
     Dosage: 9/4.8MCG 2 PUFFS, TWO TIMES A DAY
     Route: 055
     Dates: start: 20170311
  2. QVAIR [Concomitant]
     Indication: CHRONIC OBSTRUCTIVE PULMONARY DISEASE
     Route: 055
  3. QVAIR [Concomitant]
     Indication: CHRONIC OBSTRUCTIVE PULMONARY DISEASE
     Route: 055
  4. ALBUTEROL SULFATE. [Concomitant]
     Active Substance: ALBUTEROL SULFATE
     Indication: WHEEZING
     Dosage: 2.5MG AS REQUIRED
     Route: 055

REACTIONS (7)
  - Dysphonia [Unknown]
  - Circumstance or information capable of leading to medication error [Unknown]
  - Hypoacusis [Unknown]
  - Aphonia [Unknown]
  - Dyspnoea [Unknown]
  - Visual impairment [Unknown]
  - Device issue [Unknown]
